FAERS Safety Report 17813271 (Version 1)
Quarter: 2020Q2

REPORT INFORMATION
  Report Type: Spontaneous
  Country: IT (occurrence: IT)
  Receive Date: 20200521
  Receipt Date: 20200521
  Transmission Date: 20200714
  Serious: Yes (Hospitalization)
  Sender: FDA-Public Use
  Company Number: NVSC2020IT136264

PATIENT
  Age: 65 Year
  Sex: Female

DRUGS (2)
  1. LETROZOLE. [Concomitant]
     Active Substance: LETROZOLE
     Indication: ENDOMETRIAL CANCER STAGE IV
     Dosage: 2.5 MG
     Route: 048
     Dates: start: 20191210
  2. EVEROLIMUS. [Suspect]
     Active Substance: EVEROLIMUS
     Indication: ENDOMETRIAL CANCER METASTATIC
     Dosage: 5 MG, QD
     Route: 048
     Dates: start: 20191210, end: 20200205

REACTIONS (3)
  - Enteritis [Recovering/Resolving]
  - Melaena [Recovering/Resolving]
  - Anaemia [Recovering/Resolving]

NARRATIVE: CASE EVENT DATE: 20200205
